FAERS Safety Report 5631898-7 (Version None)
Quarter: 2008Q1

REPORT INFORMATION
  Report Type: 
  Country: None (occurrence: None)
  Receive Date: 20080220
  Receipt Date: 20080213
  Transmission Date: 20080703
  Serious: Yes (Hospitalization, Other)
  Sender: FDA-Public Use
  Company Number: HQWYE458201JUN07

PATIENT
  Sex: Male
  Weight: 76 kg

DRUGS (10)
  1. TACROLIMUS [Suspect]
     Indication: PROPHYLAXIS AGAINST TRANSPLANT REJECTION
     Route: 048
     Dates: start: 20060629
  2. TACROLIMUS [Suspect]
     Indication: PROPHYLAXIS
  3. TACROLIMUS [Suspect]
     Indication: HEPATIC NEOPLASM MALIGNANT RECURRENT
  4. REBETOL [Concomitant]
     Indication: HEPATITIS C VIRUS
  5. PEGASYS [Concomitant]
     Indication: HEPATITIS C VIRUS
  6. PANTOZOL [Concomitant]
     Indication: PROPHYLAXIS AGAINST GASTROINTESTINAL ULCER
  7. INSULIN [Concomitant]
     Indication: TYPE 1 DIABETES MELLITUS
  8. URSO FALK [Concomitant]
  9. CELLCEPT [Concomitant]
     Indication: PROPHYLAXIS AGAINST TRANSPLANT REJECTION
  10. RAMIPRIL [Concomitant]
     Indication: HYPERTENSION

REACTIONS (1)
  - METASTASES TO BONE [None]
